FAERS Safety Report 23115653 (Version 1)
Quarter: 2023Q4

REPORT INFORMATION
  Report Type: Spontaneous
  Country: US (occurrence: US)
  Receive Date: 20231027
  Receipt Date: 20231027
  Transmission Date: 20240109
  Serious: Yes (Other)
  Sender: FDA-Public Use
  Company Number: US-ABBVIE-5468673

PATIENT
  Sex: Male

DRUGS (2)
  1. SYNTHROID [Suspect]
     Active Substance: LEVOTHYROXINE SODIUM
     Indication: Product used for unknown indication
     Route: 048
  2. DUPIXENT [Suspect]
     Active Substance: DUPILUMAB
     Indication: Dermatitis atopic
     Dosage: TIME INTERVAL: TOTAL: FORM STRENGTH: 300MG?MAINTENANCE DOSE: 300 MG
     Route: 058
     Dates: start: 20230720

REACTIONS (1)
  - Partial seizures [Unknown]

NARRATIVE: CASE EVENT DATE: 20230101
